FAERS Safety Report 18765590 (Version 3)
Quarter: 2021Q1

REPORT INFORMATION
  Report Type: Report from Study
  Country: FR (occurrence: FR)
  Receive Date: 20210120
  Receipt Date: 20210126
  Transmission Date: 20210419
  Serious: Yes (Hospitalization)
  Sender: FDA-Public Use
  Company Number: FR-EISAI MEDICAL RESEARCH-EC-2021-086687

PATIENT
  Age: 48 Year
  Sex: Male
  Weight: 58 kg

DRUGS (13)
  1. SMECTA [Concomitant]
     Active Substance: MONTMORILLONITE
     Dates: start: 20210111
  2. BACTRIM [Concomitant]
     Active Substance: SULFAMETHOXAZOLE\TRIMETHOPRIM
     Dates: start: 20201223, end: 20201229
  3. DUROGESIC [Concomitant]
     Active Substance: FENTANYL
     Dates: start: 202012
  4. ESOMEPRAZOLE. [Concomitant]
     Active Substance: ESOMEPRAZOLE MAGNESIUM
     Dates: start: 202012
  5. MORPHINE [Concomitant]
     Active Substance: MORPHINE
     Dates: start: 202012
  6. MOVENTIG [Concomitant]
     Active Substance: NALOXEGOL OXALATE
     Dates: start: 202012
  7. LENVATINIB [Suspect]
     Active Substance: LENVATINIB
     Dosage: DAILY DOSE ALSO REPORTED AS 500 MG
     Route: 048
     Dates: end: 20210114
  8. PEMBROLIZUMAB. [Suspect]
     Active Substance: PEMBROLIZUMAB
     Indication: GASTRIC CANCER
     Dosage: TOTAL DAILY DOSE ALSO REPORTED AS 400 MG
     Route: 041
     Dates: start: 20201221, end: 20201221
  9. DOLIPRANE [Concomitant]
     Active Substance: ACETAMINOPHEN
     Dates: start: 20201221
  10. SPASFON [Concomitant]
     Dates: start: 20201221
  11. PRIMPERAN [Concomitant]
     Active Substance: METOCLOPRAMIDE HYDROCHLORIDE
     Dates: start: 202012
  12. CETRIZINE [Concomitant]
     Active Substance: CETIRIZINE HYDROCHLORIDE
  13. LENVATINIB [Suspect]
     Active Substance: LENVATINIB
     Indication: GASTRIC CANCER
     Dosage: DAILY DOSE ALSO REPORTED AS 500 MG
     Route: 048
     Dates: start: 20201221

REACTIONS (1)
  - Abdominal pain [Not Recovered/Not Resolved]

NARRATIVE: CASE EVENT DATE: 20210113
